FAERS Safety Report 20175657 (Version 1)
Quarter: 2021Q4

REPORT INFORMATION
  Report Type: Spontaneous
  Country: US (occurrence: None)
  Receive Date: 20211209
  Receipt Date: 20211209
  Transmission Date: 20220303
  Serious: Yes (Other)
  Sender: FDA-Public Use
  Company Number: None

PATIENT
  Age: 62 Year
  Sex: Female
  Weight: 73.8 kg

DRUGS (12)
  1. ROSUVASTATIN [Suspect]
     Active Substance: ROSUVASTATIN
     Indication: Cerebrovascular accident prophylaxis
     Dosage: FREQUENCY : DAILY;?
     Route: 048
     Dates: start: 20211018, end: 20211204
  2. ATENOLOL [Concomitant]
     Active Substance: ATENOLOL
  3. LEVOTHYROXINE [Concomitant]
     Active Substance: LEVOTHYROXINE
  4. TOPIRAMATE [Concomitant]
     Active Substance: TOPIRAMATE
  5. TELMISARTAN [Concomitant]
     Active Substance: TELMISARTAN
  6. PREGABALIN [Concomitant]
     Active Substance: PREGABALIN
  7. Hydrochlorathyazide [Concomitant]
  8. MONTELUKAST [Concomitant]
     Active Substance: MONTELUKAST SODIUM
  9. CETIRIZINE [Concomitant]
     Active Substance: CETIRIZINE HYDROCHLORIDE
  10. ASPIRIN [Concomitant]
     Active Substance: ASPIRIN
  11. VITAMIN D3 [Concomitant]
     Active Substance: CHOLECALCIFEROL
  12. VITAMIN B12 [Concomitant]
     Active Substance: CYANOCOBALAMIN

REACTIONS (15)
  - Abdominal discomfort [None]
  - Asthenia [None]
  - Dyspnoea [None]
  - Pollakiuria [None]
  - Decreased appetite [None]
  - Nausea [None]
  - Arthralgia [None]
  - Gastritis bacterial [None]
  - Blood glucose increased [None]
  - Gastrooesophageal reflux disease [None]
  - Taste disorder [None]
  - Confusional state [None]
  - Somnolence [None]
  - Thirst [None]
  - Breath odour [None]

NARRATIVE: CASE EVENT DATE: 20211204
